FAERS Safety Report 5257348-0 (Version None)
Quarter: 2007Q1

REPORT INFORMATION
  Report Type: 
  Country: None (occurrence: None)
  Receive Date: 20061214
  Receipt Date: 20051221
  Transmission Date: 20070707
  Serious: Yes (Other)
  Sender: FDA-Public Use
  Company Number: 2005170963

PATIENT
  Age: 17 Year
  Sex: Female
  Weight: 60.3284 kg

DRUGS (2)
  1. UNISOM [Suspect]
     Indication: INTENTIONAL OVERDOSE
     Dosage: 48 TABS ONCE, ORAL
     Route: 048
     Dates: start: 20051221, end: 20051221
  2. ANTIPSYCHOTICS (ANTIPSYCHOTICS) [Concomitant]

REACTIONS (2)
  - INTENTIONAL OVERDOSE [None]
  - MEDICATION ERROR [None]
